FAERS Safety Report 8217314-X (Version None)
Quarter: 2012Q1

REPORT INFORMATION
  Report Type: 
  Country: None (occurrence: None)
  Receive Date: 20120313
  Receipt Date: 20120301
  Transmission Date: 20120608
  Serious: Yes (Life-Threatening, Hospitalization, Other)
  Sender: FDA-Public Use
  Company Number: AUR-APL-2011-05344

PATIENT
  Age: 20 Month
  Sex: Male
  Weight: 12.5 kg

DRUGS (4)
  1. AZATHIOPRINE [Suspect]
     Indication: RENAL TRANSPLANT
     Dosage: 1 D
  2. TACROLIMUS [Suspect]
     Indication: IMMUNOSUPPRESSANT DRUG THERAPY
     Dosage: 5 MG (2.5 MG, 2 IN 1 D)
  3. METHYLPREDNISOLONE [Suspect]
     Indication: RENAL TRANSPLANT
     Dosage: 1 D
  4. FLUCONAZOLE [Suspect]
     Indication: FUNGAL PERITONITIS
     Dosage: 3 MG/KG, 1 D, ORAL
     Route: 048

REACTIONS (18)
  - PYREXIA [None]
  - LOSS OF CONSCIOUSNESS [None]
  - URETERIC OBSTRUCTION [None]
  - COMPLICATIONS OF TRANSPLANTED KIDNEY [None]
  - CANDIDA SEPSIS [None]
  - FUNGAL PERITONITIS [None]
  - GENERAL PHYSICAL HEALTH DETERIORATION [None]
  - BLOOD CREATININE INCREASED [None]
  - STRABISMUS [None]
  - DRUG INTERACTION [None]
  - THERAPEUTIC RESPONSE DELAYED [None]
  - TOXICITY TO VARIOUS AGENTS [None]
  - METABOLIC DISORDER [None]
  - ASCITES [None]
  - GLOMERULAR FILTRATION RATE DECREASED [None]
  - GASTROINTESTINAL HAEMORRHAGE [None]
  - SEPTIC SHOCK [None]
  - PERITONEAL CANDIDIASIS [None]
